FAERS Safety Report 17438203 (Version 1)
Quarter: 2020Q1

REPORT INFORMATION
  Report Type: Spontaneous
  Country: CZ (occurrence: CZ)
  Receive Date: 20200220
  Receipt Date: 20200220
  Transmission Date: 20200409
  Serious: Yes (Other)
  Sender: FDA-Public Use
  Company Number: CZ-AUROBINDO-AUR-APL-2020-004507

PATIENT
  Age: 30 Year
  Sex: Male

DRUGS (8)
  1. CARBAMAZEPINE. [Suspect]
     Active Substance: CARBAMAZEPINE
     Indication: IDIOPATHIC GENERALISED EPILEPSY
  2. LAMOTRIGINE. [Suspect]
     Active Substance: LAMOTRIGINE
     Indication: IDIOPATHIC GENERALISED EPILEPSY
  3. LAMOTRIGINE. [Suspect]
     Active Substance: LAMOTRIGINE
     Indication: EPILEPSY
     Dosage: 100 MILLIGRAM, ONCE A DAY
     Route: 048
  4. CLONAZEPAM. [Suspect]
     Active Substance: CLONAZEPAM
     Indication: EPILEPSY
     Dosage: UNK UNK, ONCE A DAY, (2-3MG DAILY)
     Route: 065
  5. CLONAZEPAM. [Suspect]
     Active Substance: CLONAZEPAM
     Indication: IDIOPATHIC GENERALISED EPILEPSY
  6. VALPROIC ACID. [Suspect]
     Active Substance: VALPROIC ACID
     Indication: EPILEPSY
     Dosage: 2000 MILLIGRAM, ONCE A DAY
     Route: 065
  7. VALPROIC ACID. [Suspect]
     Active Substance: VALPROIC ACID
     Indication: IDIOPATHIC GENERALISED EPILEPSY
  8. CARBAMAZEPINE. [Suspect]
     Active Substance: CARBAMAZEPINE
     Indication: EPILEPSY
     Dosage: 600 MILLIGRAM, ONCE A DAY
     Route: 048

REACTIONS (11)
  - Thermal burn [Recovered/Resolved]
  - Osteopenia [Recovered/Resolved]
  - Alopecia [Recovered/Resolved]
  - Depression [Recovered/Resolved]
  - Drug ineffective [Unknown]
  - Insomnia [Recovered/Resolved]
  - Drug withdrawal syndrome [Recovered/Resolved]
  - Loss of personal independence in daily activities [Recovered/Resolved]
  - Joint injury [Recovered/Resolved]
  - Weight increased [Recovered/Resolved]
  - Tremor [Recovered/Resolved]

NARRATIVE: CASE EVENT DATE: 201604
